FAERS Safety Report 25869796 (Version 1)
Quarter: 2025Q4

REPORT INFORMATION
  Report Type: Spontaneous
  Country: EU (occurrence: EU)
  Receive Date: 20251001
  Receipt Date: 20251001
  Transmission Date: 20260118
  Serious: Yes (Hospitalization)
  Sender: TEVA
  Company Number: None

PATIENT
  Age: 34 Year
  Sex: Male
  Weight: 78 kg

DRUGS (4)
  1. METHOTREXATE [Suspect]
     Active Substance: METHOTREXATE
     Indication: Product used for unknown indication
     Dosage: METHOTREXATE TEVA
     Route: 065
  2. METHOTREXATE [Suspect]
     Active Substance: METHOTREXATE
     Indication: T-cell lymphoma
     Dosage: TIME INTERVAL: TOTAL
     Route: 042
     Dates: start: 20250618, end: 20250618
  3. PURINETHOL [Suspect]
     Active Substance: MERCAPTOPURINE
     Indication: T-cell lymphoma
     Dosage: SCORED TABLET
     Route: 048
     Dates: start: 20250618, end: 20250618
  4. VINCRISTINE [Suspect]
     Active Substance: VINCRISTINE
     Indication: T-cell lymphoma
     Dosage: TIME INTERVAL: TOTAL: 2 MG/2 ML
     Route: 042
     Dates: start: 20250618, end: 20250618

REACTIONS (9)
  - Product supply issue [Recovered/Resolved]
  - Hepatic cytolysis [Recovered/Resolved]
  - Mucosal inflammation [Recovering/Resolving]
  - Acute kidney injury [Recovered/Resolved]
  - Thrombocytopenia [Recovered/Resolved]
  - Abdominal pain [Recovering/Resolving]
  - Anaemia [Recovering/Resolving]
  - Pyrexia [Recovered/Resolved]
  - Drug level increased [Recovered/Resolved]

NARRATIVE: CASE EVENT DATE: 20250618
